FAERS Safety Report 7299764-1 (Version None)
Quarter: 2011Q1

REPORT INFORMATION
  Report Type: 
  Country: None (occurrence: None)
  Receive Date: 20110209
  Receipt Date: 20110126
  Transmission Date: 20110831
  Serious: Yes (Other)
  Sender: FDA-Public Use
  Company Number: 011202

PATIENT
  Age: 15 Year
  Sex: Male

DRUGS (5)
  1. CYCLOPHOSPHAMIDE [Concomitant]
  2. BUSULFAN [Suspect]
     Indication: STEM CELL TRANSPLANT
     Dosage: 4 MG/KG, ORAL
     Route: 048
  3. HEPARIN [Concomitant]
  4. ACYCLOVIR [Concomitant]
  5. ETOPOSIDE [Concomitant]

REACTIONS (3)
  - PYREXIA [None]
  - STOMATITIS [None]
  - NEUTROPENIA [None]
